FAERS Safety Report 11795104 (Version 2)
Quarter: 2016Q1

REPORT INFORMATION
  Report Type: Report from Study
  Country: US (occurrence: US)
  Receive Date: 20151202
  Receipt Date: 20160104
  Transmission Date: 20160525
  Serious: Yes (Hospitalization)
  Sender: FDA-Public Use
  Company Number: US-JNJFOC-20151200849

PATIENT
  Sex: Male

DRUGS (20)
  1. FLUDROCORTISONE [Concomitant]
     Active Substance: FLUDROCORTISONE
  2. MEGACE [Concomitant]
     Active Substance: MEGESTROL ACETATE
  3. VITAMIN B12 [Concomitant]
     Active Substance: CYANOCOBALAMIN
  4. ZOFRAN [Concomitant]
     Active Substance: ONDANSETRON HYDROCHLORIDE
  5. IPRATROPIUM [Concomitant]
     Active Substance: IPRATROPIUM
  6. ACYCLOVIR. [Concomitant]
     Active Substance: ACYCLOVIR
  7. IMBRUVICA [Suspect]
     Active Substance: IBRUTINIB
     Indication: CHRONIC LYMPHOCYTIC LEUKAEMIA
     Route: 048
     Dates: start: 20140701
  8. PROPRANOLOL [Concomitant]
     Active Substance: PROPRANOLOL\PROPRANOLOL HYDROCHLORIDE
  9. VITAMIN B NOS [Concomitant]
     Active Substance: VITAMIN B
  10. DIGOXIN. [Concomitant]
     Active Substance: DIGOXIN
  11. CLARITIN [Concomitant]
     Active Substance: LORATADINE
  12. MIDODRINE [Concomitant]
     Active Substance: MIDODRINE
  13. SULFAMETHOXAZOLE-TRIMETHOPRIM (SMZ) [Concomitant]
     Active Substance: SULFAMETHOXAZOLE\TRIMETHOPRIM
  14. PROTONIX [Concomitant]
     Active Substance: PANTOPRAZOLE SODIUM
  15. IMBRUVICA [Suspect]
     Active Substance: IBRUTINIB
     Indication: CHRONIC LYMPHOCYTIC LEUKAEMIA
     Route: 048
  16. OXYCODONE [Concomitant]
     Active Substance: OXYCODONE
  17. MULTIVITAMINS [Concomitant]
     Active Substance: VITAMINS
  18. HYDROCORTISONE. [Concomitant]
     Active Substance: HYDROCORTISONE
  19. SYNTHROID [Concomitant]
     Active Substance: LEVOTHYROXINE SODIUM
  20. PREDNISONE. [Concomitant]
     Active Substance: PREDNISONE

REACTIONS (1)
  - Pericardial effusion [Unknown]

NARRATIVE: CASE EVENT DATE: 2015
